FAERS Safety Report 10203169 (Version 4)
Quarter: 2015Q1

REPORT INFORMATION
  Report Type: Report from Study
  Country: US (occurrence: US)
  Receive Date: 20140529
  Receipt Date: 20150318
  Transmission Date: 20150720
  Serious: Yes (Hospitalization)
  Sender: FDA-Public Use
  Company Number: US-BIOGENIDEC-2014BI049945

PATIENT
  Age: 52 Year
  Sex: Female

DRUGS (4)
  1. AVONEX [Suspect]
     Active Substance: INTERFERON BETA-1A
     Indication: MULTIPLE SCLEROSIS
     Route: 030
     Dates: start: 2014
  2. AVONEX [Suspect]
     Active Substance: INTERFERON BETA-1A
     Indication: MULTIPLE SCLEROSIS
     Route: 030
     Dates: start: 20060114, end: 20080313
  3. AVONEX [Suspect]
     Active Substance: INTERFERON BETA-1A
     Indication: MULTIPLE SCLEROSIS
     Route: 030
     Dates: start: 20010320, end: 20050411
  4. AVONEX [Suspect]
     Active Substance: INTERFERON BETA-1A
     Indication: MULTIPLE SCLEROSIS
     Route: 030
     Dates: start: 20080518, end: 20140421

REACTIONS (14)
  - Swelling [Not Recovered/Not Resolved]
  - Dysgraphia [Unknown]
  - Stress [Not Recovered/Not Resolved]
  - Cerebral haemorrhage [Recovered/Resolved]
  - Loss of consciousness [Recovered/Resolved]
  - Amnesia [Not Recovered/Not Resolved]
  - Malaise [Recovered/Resolved]
  - Injury [Recovered/Resolved]
  - Mobility decreased [Not Recovered/Not Resolved]
  - Venous injury [Not Recovered/Not Resolved]
  - Fall [Recovered/Resolved]
  - Contusion [Recovered/Resolved]
  - Ear injury [Recovered/Resolved]
  - Memory impairment [Not Recovered/Not Resolved]

NARRATIVE: CASE EVENT DATE: 2014
